FAERS Safety Report 13127518 (Version 1)
Quarter: 2017Q1

REPORT INFORMATION
  Report Type: Spontaneous
  Country: RU (occurrence: RU)
  Receive Date: 20170118
  Receipt Date: 20170118
  Transmission Date: 20170428
  Serious: Yes (Hospitalization)
  Sender: FDA-Public Use
  Company Number: RU-ASTRAZENECA-2017SE04954

PATIENT
  Age: 5 Year
  Sex: Male
  Weight: 51 kg

DRUGS (4)
  1. THROMBO ASS [Concomitant]
     Active Substance: ASPIRIN
  2. PULMICORT RESPULES [Suspect]
     Active Substance: BUDESONIDE
     Indication: ASTHMA
     Route: 055
     Dates: start: 201606
  3. PULMICORT RESPULES [Suspect]
     Active Substance: BUDESONIDE
     Indication: MYOCARDIAL INFARCTION
     Route: 055
     Dates: start: 201606
  4. CRESTOR [Concomitant]
     Active Substance: ROSUVASTATIN CALCIUM

REACTIONS (2)
  - Drug ineffective [Recovering/Resolving]
  - Asthma [Recovering/Resolving]
